FAERS Safety Report 17078620 (Version 1)
Quarter: 2019Q4

REPORT INFORMATION
  Report Type: Spontaneous
  Country: US (occurrence: US)
  Receive Date: 20191127
  Receipt Date: 20191127
  Transmission Date: 20200122
  Serious: No
  Sender: FDA-Public Use
  Company Number: US-AMGEN-USASP2019194963

PATIENT
  Age: 41 Year
  Sex: Male

DRUGS (2)
  1. NPLATE [Suspect]
     Active Substance: ROMIPLOSTIM
     Indication: IMMUNE THROMBOCYTOPENIC PURPURA
     Dosage: UNK UNK, QWK
     Route: 065
     Dates: start: 2019
  2. NPLATE [Suspect]
     Active Substance: ROMIPLOSTIM
     Dosage: UNK UNK, Q2WK
     Route: 065
     Dates: start: 2019

REACTIONS (4)
  - Skin exfoliation [Recovering/Resolving]
  - Rash [Recovering/Resolving]
  - Off label use [Unknown]
  - Urticaria [Recovering/Resolving]

NARRATIVE: CASE EVENT DATE: 2019
